FAERS Safety Report 11617147 (Version 1)
Quarter: 2015Q4

REPORT INFORMATION
  Report Type: Spontaneous
  Country: CH (occurrence: CH)
  Receive Date: 20151009
  Receipt Date: 20151009
  Transmission Date: 20160304
  Serious: Yes (Hospitalization)
  Sender: FDA-Public Use
  Company Number: CH-TEVA-551226ISR

PATIENT
  Age: 79 Year
  Sex: Male

DRUGS (5)
  1. ANXIOLIT [Concomitant]
     Active Substance: OXAZEPAM
     Indication: DEPRESSION
     Dosage: 7.5 MILLIGRAM DAILY;
     Route: 048
     Dates: start: 20150306
  2. IRFEN-400 LACTAB [Suspect]
     Active Substance: IBUPROFEN
     Indication: PAIN
     Route: 048
     Dates: start: 20150101, end: 20150306
  3. CIPRALEX MELTZ [Suspect]
     Active Substance: ESCITALOPRAM OXALATE
     Indication: DEPRESSION
     Dosage: 20 MILLIGRAM DAILY;
     Route: 048
     Dates: start: 20140301, end: 20150306
  4. CLEXANE 100 MG/ML [Concomitant]
     Indication: THROMBOSIS PROPHYLAXIS
     Dosage: 40 MILLIGRAM DAILY;
     Route: 058
     Dates: start: 20150306
  5. DAFALGAN [Suspect]
     Active Substance: ACETAMINOPHEN
     Indication: PAIN
     Dosage: 3 GRAM DAILY; TAKEN INCONSTANTLY SINCE THE BEGINNING OF FEB-2015, ON AVERAGE: ON 2 OUT OF 3 DAYS
     Route: 048
     Dates: start: 20150101, end: 20150306

REACTIONS (3)
  - Transaminases increased [Recovering/Resolving]
  - Cholestasis [Recovering/Resolving]
  - Fall [Unknown]

NARRATIVE: CASE EVENT DATE: 20150306
